FAERS Safety Report 4973463-0 (Version None)
Quarter: 2006Q2

REPORT INFORMATION
  Report Type: 
  Country: None (occurrence: None)
  Receive Date: 20060414
  Receipt Date: 20060410
  Transmission Date: 20061013
  Serious: Yes (Death)
  Sender: FDA-Public Use
  Company Number: AU-SANOFI-SYNTHELABO-F01200600995

PATIENT
  Sex: Female

DRUGS (7)
  1. OXALIPLATIN [Suspect]
     Indication: COLON CANCER
     Dosage: Q2W
     Route: 042
     Dates: start: 20050704, end: 20050704
  2. FLUOROURACIL [Suspect]
     Indication: COLON CANCER
     Dosage: 400MG/M2 IV BOLUS AND 600MG/M2 CONTINUOUS INFUSION Q2W
     Route: 042
     Dates: start: 20050704, end: 20050704
  3. FLUOROURACIL [Suspect]
     Route: 042
     Dates: start: 20050704, end: 20050705
  4. LEUCOVORIN [Suspect]
     Indication: COLON CANCER
     Route: 042
  5. AVASTIN [Suspect]
     Indication: COLON CANCER
     Dosage: Q2W OR Q3W
     Route: 042
     Dates: start: 20050704, end: 20050704
  6. LOPID [Concomitant]
     Dosage: UNK
     Dates: start: 20030615
  7. DIAFORMIN [Concomitant]
     Dates: start: 20050415

REACTIONS (4)
  - CHEST DISCOMFORT [None]
  - DEATH [None]
  - DYSPEPSIA [None]
  - OESOPHAGITIS [None]
